FAERS Safety Report 6637404-2 (Version None)
Quarter: 2010Q1

REPORT INFORMATION
  Report Type: 
  Country: None (occurrence: None)
  Receive Date: 20100316
  Receipt Date: 20100311
  Transmission Date: 20100710
  Serious: Yes (Other)
  Sender: FDA-Public Use
  Company Number: CA-MERCK-1003USA01785

PATIENT
  Age: 88 Year
  Sex: Female

DRUGS (6)
  1. TRUSOPT [Suspect]
     Route: 047
  2. ALPHAGAN [Suspect]
     Route: 065
  3. XALATAN [Suspect]
     Route: 065
  4. FLONASE [Concomitant]
     Route: 065
  5. FLOVENT [Concomitant]
     Route: 065
  6. ALBUTEROL [Concomitant]
     Route: 065

REACTIONS (3)
  - DYSPNOEA [None]
  - HYPERSENSITIVITY [None]
  - SOMNOLENCE [None]
